FAERS Safety Report 9742668 (Version 2)
Quarter: 2013Q4

REPORT INFORMATION
  Report Type: Spontaneous
  Country: US (occurrence: US)
  Receive Date: 20131210
  Receipt Date: 20131210
  Transmission Date: 20140711
  Serious: No
  Sender: FDA-Public Use
  Company Number: US-GILEAD-2009-0024606

PATIENT
  Sex: Female
  Weight: 76.66 kg

DRUGS (11)
  1. LETAIRIS [Suspect]
     Indication: PULMONARY ARTERIAL HYPERTENSION
     Route: 048
     Dates: start: 20090910
  2. ATENOLOL [Concomitant]
  3. LASIX [Concomitant]
  4. LIPITOR [Concomitant]
  5. NITROGLYCERIN [Concomitant]
  6. SYNTHROID [Concomitant]
  7. CLEOCIN [Concomitant]
  8. SYMBICORT [Concomitant]
  9. ASPIRIN [Concomitant]
  10. POTASSIUM CL [Concomitant]
  11. VITAMIN D [Concomitant]

REACTIONS (1)
  - Diarrhoea [Unknown]
